FAERS Safety Report 9817645 (Version 1)
Quarter: 2014Q1

REPORT INFORMATION
  Report Type: Spontaneous
  Country: FR (occurrence: FR)
  Receive Date: 20140115
  Receipt Date: 20140115
  Transmission Date: 20141002
  Serious: Yes (Hospitalization)
  Sender: FDA-Public Use
  Company Number: FR-ACCORD-021310

PATIENT
  Age: 53 Year
  Sex: Male

DRUGS (1)
  1. DOCETAXEL [Suspect]
     Indication: LUNG SQUAMOUS CELL CARCINOMA RECURRENT
     Dosage: 1ST COURSE OF DOCETAXEL 120 MG ON 07-JUN-2013, 2ND INFUSION OF DOCETAXEL 114 MG WAS ON 28-JUN-2013.
     Route: 042
     Dates: start: 20130607, end: 20130628

REACTIONS (2)
  - Choroiditis [Recovering/Resolving]
  - Candida infection [Recovering/Resolving]
